FAERS Safety Report 15993553 (Version 1)
Quarter: 2019Q1

REPORT INFORMATION
  Report Type: Report from Study
  Country: KR (occurrence: KR)
  Receive Date: 20190222
  Receipt Date: 20190222
  Transmission Date: 20190418
  Serious: Yes (Death, Hospitalization, Other)
  Sender: FDA-Public Use
  Company Number: KR-BRISTOL-MYERS SQUIBB COMPANY-BMS-2019-016473

PATIENT
  Age: 65 Year
  Sex: Female
  Weight: 52 kg

DRUGS (1)
  1. NIVOLUMAB [Suspect]
     Active Substance: NIVOLUMAB
     Indication: NON-SMALL CELL LUNG CANCER
     Dosage: 165 MG, UNK
     Route: 042
     Dates: start: 20180403, end: 20190123

REACTIONS (2)
  - Peritonitis [Fatal]
  - Colitis [Unknown]

NARRATIVE: CASE EVENT DATE: 20190213
